FAERS Safety Report 6227472-4 (Version None)
Quarter: 2009Q2

REPORT INFORMATION
  Report Type: 
  Country: None (occurrence: None)
  Receive Date: 20090612
  Receipt Date: 20090602
  Transmission Date: 20091009
  Serious: Yes (Hospitalization)
  Sender: FDA-Public Use
  Company Number: PHHY2009FR21718

PATIENT
  Sex: Female

DRUGS (9)
  1. GLEEVEC [Suspect]
     Indication: METASTATIC MALIGNANT MELANOMA
     Dosage: 400 MG, QD
     Dates: start: 20081104
  2. GLEEVEC [Suspect]
     Dosage: 100 MG, QD
     Dates: start: 20081226, end: 20090102
  3. GLEEVEC [Suspect]
     Dosage: 200 MG, UNK
     Dates: start: 20090103, end: 20090110
  4. GLEEVEC [Suspect]
     Dosage: 300 MG, QD
     Dates: start: 20090111, end: 20090130
  5. FOTEMUSTINE [Concomitant]
     Indication: METASTATIC MALIGNANT MELANOMA
     Dosage: UNK
     Dates: start: 20081104
  6. CISPLATIN [Concomitant]
     Indication: METASTATIC MALIGNANT MELANOMA
     Dosage: UNK
     Dates: start: 20081104
  7. CARBOPLATIN [Concomitant]
     Indication: METASTATIC MALIGNANT MELANOMA
     Dosage: UNK
     Dates: start: 20081104
  8. PAROXETINE HCL [Concomitant]
     Dosage: UNK
  9. LEXOMIL [Concomitant]
     Dosage: UNK

REACTIONS (13)
  - ANAEMIA [None]
  - BLISTER [None]
  - CHEILITIS [None]
  - CHOLESTASIS [None]
  - CYTOLYTIC HEPATITIS [None]
  - EOSINOPHILIA [None]
  - OROPHARYNGEAL BLISTERING [None]
  - RASH MACULO-PAPULAR [None]
  - RENAL FAILURE [None]
  - SCAB [None]
  - SKIN PLAQUE [None]
  - STOMATITIS [None]
  - TOXIC SKIN ERUPTION [None]
